FAERS Safety Report 6190536-8 (Version None)
Quarter: 2009Q2

REPORT INFORMATION
  Report Type: 
  Country: None (occurrence: None)
  Receive Date: 20090514
  Receipt Date: 20090505
  Transmission Date: 20091009
  Serious: Yes (Other)
  Sender: FDA-Public Use
  Company Number: PHEH2009US02906

PATIENT
  Sex: Female
  Weight: 104 kg

DRUGS (5)
  1. TRILEPTAL [Suspect]
     Indication: GRAND MAL CONVULSION
     Dosage: 300 MG, BID
     Route: 048
     Dates: start: 20010101, end: 20090321
  2. BUMEX [Suspect]
     Indication: HYPERTENSION
     Dosage: 1 MG, QW
     Route: 048
     Dates: start: 19990601, end: 20090313
  3. BUMEX [Suspect]
     Indication: FLUID RETENTION
  4. VERAPAMIL [Concomitant]
     Indication: ESSENTIAL HYPERTENSION
     Dosage: 240 UNK, QD
     Route: 048
     Dates: start: 20070501
  5. ZOLPIDEM [Concomitant]
     Dosage: 10 MG, TWICE WEEKLY

REACTIONS (29)
  - ABDOMINAL TENDERNESS [None]
  - ALANINE AMINOTRANSFERASE INCREASED [None]
  - ANOREXIA [None]
  - ASPARTATE AMINOTRANSFERASE INCREASED [None]
  - ASTHENIA [None]
  - BACK PAIN [None]
  - BILIRUBIN URINE [None]
  - BLOOD ALKALINE PHOSPHATASE INCREASED [None]
  - BLOOD BILIRUBIN INCREASED [None]
  - BLOOD GLUCOSE DECREASED [None]
  - BLOOD GLUCOSE INCREASED [None]
  - BLOOD POTASSIUM DECREASED [None]
  - CARBON DIOXIDE DECREASED [None]
  - CHROMATURIA [None]
  - FAECES PALE [None]
  - FATIGUE [None]
  - FLANK PAIN [None]
  - HEPATITIS A [None]
  - INFLUENZA LIKE ILLNESS [None]
  - LIVER FUNCTION TEST ABNORMAL [None]
  - LIVER TENDERNESS [None]
  - LYMPHOCYTE COUNT DECREASED [None]
  - MALAISE [None]
  - NEUTROPHIL COUNT INCREASED [None]
  - PRURITUS [None]
  - PYELONEPHRITIS ACUTE [None]
  - PYREXIA [None]
  - URINARY TRACT INFECTION [None]
  - URINE ABNORMALITY [None]
